FAERS Safety Report 12672122 (Version 1)
Quarter: 2016Q3

REPORT INFORMATION
  Report Type: Spontaneous
  Country: US (occurrence: US)
  Receive Date: 20160822
  Receipt Date: 20160822
  Transmission Date: 20161109
  Serious: No
  Sender: FDA-Public Use
  Company Number: US-PFIZER INC-2016393172

PATIENT
  Sex: Female
  Weight: 91 kg

DRUGS (1)
  1. CELEBREX [Suspect]
     Active Substance: CELECOXIB
     Indication: FIBROMYALGIA
     Dosage: 30 MG, UNK

REACTIONS (2)
  - Gastric disorder [Recovering/Resolving]
  - Product use issue [Unknown]
